FAERS Safety Report 5167483-3 (Version None)
Quarter: 2006Q4

REPORT INFORMATION
  Report Type: 
  Country: None (occurrence: None)
  Receive Date: 20061130
  Receipt Date: 20061120
  Transmission Date: 20070319
  Serious: Yes (Hospitalization)
  Sender: FDA-Public Use
  Company Number: 2006SP004264

PATIENT
  Age: 70 Year
  Sex: Female

DRUGS (2)
  1. INTRON A [Suspect]
     Indication: HEPATITIS C
     Dosage: 6 MIU; IM
     Route: 030
     Dates: start: 20040708, end: 20041127
  2. REBETOL [Suspect]
     Indication: HEPATITIS C
     Dosage: 400 MG; QD; PO
     Route: 048
     Dates: start: 20040708, end: 20041127

REACTIONS (3)
  - ANOREXIA [None]
  - HAEMOTHORAX [None]
  - PLEURISY [None]
